FAERS Safety Report 19649238 (Version 1)
Quarter: 2021Q3

REPORT INFORMATION
  Report Type: Spontaneous
  Country: GA (occurrence: GA)
  Receive Date: 20210803
  Receipt Date: 20210803
  Transmission Date: 20211014
  Serious: No
  Sender: FDA-Public Use
  Company Number: GA-LUPIN PHARMACEUTICALS INC.-2021-13598

PATIENT
  Age: 20 Year
  Sex: Female

DRUGS (6)
  1. PARACETAMOL [Suspect]
     Active Substance: ACETAMINOPHEN
     Indication: MALARIA
     Dosage: 1 GRAM, QID
     Route: 065
  2. VITAMIN C [Suspect]
     Active Substance: ASCORBIC ACID
     Indication: COVID-19
     Dosage: 500 MILLIGRAM, QD
     Route: 065
  3. AZITHROMYCIN ANHYDROUS. [Suspect]
     Active Substance: AZITHROMYCIN ANHYDROUS
     Dosage: 250 MILLIGRAM, BID
     Route: 065
  4. QUININE [Suspect]
     Active Substance: QUININE
     Indication: MALARIA
     Dosage: 24 MILLIGRAM/KILOGRAM,WITHOUT EXCEEDING 1500MG
     Route: 065
  5. AZITHROMYCIN ANHYDROUS. [Suspect]
     Active Substance: AZITHROMYCIN ANHYDROUS
     Indication: COVID-19
     Dosage: 500 MILLIGRAM, QD
     Route: 065
  6. ZINC. [Suspect]
     Active Substance: ZINC
     Indication: COVID-19
     Dosage: 15 MILLIGRAM, QD
     Route: 065

REACTIONS (2)
  - Exposure during pregnancy [Unknown]
  - Off label use [Unknown]
